FAERS Safety Report 25259000 (Version 1)
Quarter: 2025Q2

REPORT INFORMATION
  Report Type: Spontaneous
  Country: US (occurrence: None)
  Receive Date: 20250430
  Receipt Date: 20250430
  Transmission Date: 20250716
  Serious: Yes (unspecified)
  Sender: FDA-CTU
  Company Number: None

PATIENT
  Age: 55 Year
  Sex: Male

DRUGS (1)
  1. BUPRENORPHINE\NALOXONE [Suspect]
     Active Substance: BUPRENORPHINE\NALOXONE
     Indication: Pain
     Dosage: FREQUENCY : TWICE A DAY;?
     Route: 060
     Dates: start: 20240628

REACTIONS (7)
  - Impaired healing [None]
  - Stomatitis [None]
  - Oral pain [None]
  - Burning sensation mucosal [None]
  - Oral discomfort [None]
  - Mucosal inflammation [None]
  - Injury [None]

NARRATIVE: CASE EVENT DATE: 20240107
